FAERS Safety Report 4922381-2 (Version None)
Quarter: 2006Q1

REPORT INFORMATION
  Report Type: 
  Country: None (occurrence: None)
  Receive Date: 20060224
  Receipt Date: 20051031
  Transmission Date: 20060701
  Serious: Yes (Hospitalization)
  Sender: FDA-Public Use
  Company Number: US-MERCK-0511USA00302

PATIENT
  Age: 70 Year
  Sex: Male

DRUGS (18)
  1. VIOXX [Suspect]
     Indication: ARTHRITIS
     Route: 048
     Dates: start: 20000101, end: 20030101
  2. VIOXX [Suspect]
     Indication: OSTEOARTHRITIS
     Route: 048
     Dates: start: 20000101, end: 20030101
  3. BUTALBITAL [Concomitant]
     Indication: MIGRAINE
     Route: 065
  4. HYLAN G-F 20 [Concomitant]
     Indication: ARTHRITIS
     Route: 065
  5. LEVAQUIN [Concomitant]
     Indication: BACTERIAL INFECTION
     Route: 065
  6. HYDROCODONE BITARTRATE [Concomitant]
     Indication: PAIN
     Route: 065
  7. CLOPIDOGREL BISULFATE [Concomitant]
     Indication: CARDIAC DISORDER
     Route: 065
  8. DICLOFENAC [Concomitant]
     Indication: ARTHRITIS
     Route: 065
  9. IBUPROFEN [Concomitant]
     Indication: ARTHRITIS
     Route: 048
     Dates: start: 19950621, end: 20040704
  10. PREVACID [Concomitant]
     Indication: DYSPEPSIA
     Route: 065
  11. PREVACID [Concomitant]
     Indication: GASTROOESOPHAGEAL REFLUX DISEASE
     Route: 065
  12. PROSCAR [Concomitant]
     Indication: PROSTATIC DISORDER
     Route: 065
  13. NEURONTIN [Concomitant]
     Indication: PAIN
     Route: 065
  14. GLIPIZIDE [Concomitant]
     Indication: DIABETES MELLITUS
     Route: 065
  15. DEXAMETHASONE [Concomitant]
     Indication: PAIN
     Route: 065
  16. DEXAMETHASONE [Concomitant]
     Indication: ARTHRITIS
     Route: 065
  17. CELECOXIB [Concomitant]
     Indication: PAIN
     Route: 048
     Dates: start: 20000110, end: 20010320
  18. OMEPRAZOLE [Concomitant]
     Indication: GASTRIC DISORDER
     Route: 065

REACTIONS (8)
  - ARTERIOSCLEROSIS [None]
  - CEREBROVASCULAR ACCIDENT [None]
  - CORONARY ARTERY DISEASE [None]
  - CORONARY ARTERY OCCLUSION [None]
  - DIABETES MELLITUS [None]
  - GLAUCOMA [None]
  - HEADACHE [None]
  - HEPATITIS C [None]
